FAERS Safety Report 7481188-5 (Version None)
Quarter: 2011Q2

REPORT INFORMATION
  Report Type: 
  Country: None (occurrence: None)
  Receive Date: 20110516
  Receipt Date: 20110513
  Transmission Date: 20111010
  Serious: Yes (Life-Threatening, Hospitalization, Other)
  Sender: FDA-Public Use
  Company Number: DE-SANOFI-AVENTIS-2011SA029505

PATIENT
  Age: 76 Year
  Sex: Female
  Weight: 77 kg

DRUGS (1)
  1. MULTAQ [Suspect]
     Indication: ATRIAL FIBRILLATION
     Dosage: 2X1 FILM-COATED TABLET AT 400 MG DAILY PER OS
     Route: 048
     Dates: start: 20110103, end: 20110226

REACTIONS (2)
  - TORSADE DE POINTES [None]
  - LONG QT SYNDROME [None]
